FAERS Safety Report 7606004-X (Version None)
Quarter: 2011Q3

REPORT INFORMATION
  Report Type: 
  Country: None (occurrence: None)
  Receive Date: 20110713
  Receipt Date: 20110629
  Transmission Date: 20111222
  Serious: Yes (Hospitalization)
  Sender: FDA-Public Use
  Company Number: PHHY2009AU40552

PATIENT
  Sex: Male

DRUGS (10)
  1. VENLAFAXINE [Concomitant]
     Indication: DEPRESSION
     Dosage: 150 MG, MORNING
  2. IRON SUPPLEMENTS [Concomitant]
     Indication: HAEMOGLOBIN DECREASED
     Dosage: 1 DF, MORNING
  3. CLOZAPINE [Suspect]
     Indication: SCHIZOPHRENIA
     Dosage: 300 MG, UNK
     Dates: start: 20030311
  4. CLOZAPINE [Suspect]
     Dosage: 300 MG, DAILY
     Route: 048
     Dates: start: 20090108, end: 20090901
  5. COLECALCIFEROL [Concomitant]
     Indication: VITAMIN D DEFICIENCY
     Dosage: 1000 U, DAILY
     Route: 048
  6. VALPROATE SODIUM [Concomitant]
     Indication: MOOD ALTERED
     Dosage: 2.5 G, 1G MANE AND 1.5 G NOCTE
     Route: 048
  7. SIMVASTATIN [Concomitant]
     Indication: HYPERLIPIDAEMIA
     Dosage: 20 MG, DAILY
  8. METFORMIN HCL [Concomitant]
     Indication: DIABETES MELLITUS
     Dosage: 1 G, TID
     Route: 048
  9. GLICLAZIDE [Concomitant]
     Indication: DIABETES MELLITUS
     Dosage: 60 MG, MORNING
  10. RANITIDINE [Concomitant]
     Indication: GASTROOESOPHAGEAL REFLUX DISEASE
     Dosage: 150 MG, BID
     Route: 048

REACTIONS (4)
  - SCHIZOPHRENIA [None]
  - ANGER [None]
  - MALAISE [None]
  - ANTIPSYCHOTIC DRUG LEVEL BELOW THERAPEUTIC [None]
